FAERS Safety Report 8297803 (Version 8)
Quarter: 2013Q2

REPORT INFORMATION
  Report Type: Report from Study
  Country: CA (occurrence: CA)
  Receive Date: 20111219
  Receipt Date: 20130509
  Transmission Date: 20140414
  Serious: Yes (Other)
  Sender: FDA-Public Use
  Company Number: CA-BRISTOL-MYERS SQUIBB COMPANY-15543341

PATIENT
  Age: 57 Year
  Sex: Female
  Weight: 83.9 kg

DRUGS (9)
  1. ORENCIA [Suspect]
     Indication: RHEUMATOID ARTHRITIS
     Dosage: LAST DOSE:13SEP11,17JAN,27MAR,10OCT12,INF:22,LOT:1G64569,2F72016 EXP:MAR14INTR:UNKN,RESUMED:12SEP12
     Route: 042
     Dates: start: 20100107
  2. PREDNISONE [Concomitant]
  3. AMLODIPINE BESYLATE [Concomitant]
  4. PREMARIN [Concomitant]
  5. TYLENOL #3 [Concomitant]
  6. SPIRIVA [Concomitant]
  7. ADVAIR [Concomitant]
  8. FLOVENT [Concomitant]
  9. AMIODARONE [Concomitant]

REACTIONS (9)
  - Chronic obstructive pulmonary disease [Recovered/Resolved]
  - Cardiac disorder [Recovered/Resolved]
  - Arrhythmia [Unknown]
  - Lower respiratory tract infection [Recovered/Resolved]
  - Fatigue [Recovered/Resolved]
  - Nasopharyngitis [Not Recovered/Not Resolved]
  - Aphthous stomatitis [Not Recovered/Not Resolved]
  - Cystitis [Not Recovered/Not Resolved]
  - Dyspnoea [Not Recovered/Not Resolved]
